FAERS Safety Report 23246532 (Version 1)
Quarter: 2023Q4

REPORT INFORMATION
  Report Type: Spontaneous
  Country: NL (occurrence: NL)
  Receive Date: 20231130
  Receipt Date: 20231130
  Transmission Date: 20240110
  Serious: Yes (Other)
  Sender: FDA-Public Use
  Company Number: NL-AMGEN-NLDSP2023211280

PATIENT
  Age: 71 Year
  Sex: Male

DRUGS (3)
  1. BEVACIZUMAB [Suspect]
     Active Substance: BEVACIZUMAB
     Indication: Retinoschisis
     Dosage: UNK
  2. BETAMETHASONE [Suspect]
     Active Substance: BETAMETHASONE\BETAMETHASONE DIPROPIONATE
     Indication: Retinoschisis
     Dosage: UNK
  3. ACETAZOLAMIDE [Suspect]
     Active Substance: ACETAZOLAMIDE
     Indication: Retinoschisis
     Dosage: UNK
     Route: 048

REACTIONS (5)
  - Ocular ischaemic syndrome [Unknown]
  - Carotid artery stenosis [Unknown]
  - Drug ineffective for unapproved indication [Unknown]
  - Diabetic retinopathy [Unknown]
  - Off label use [Unknown]
